FAERS Safety Report 7378344-3 (Version None)
Quarter: 2011Q1

REPORT INFORMATION
  Report Type: 
  Country: None (occurrence: None)
  Receive Date: 20110328
  Receipt Date: 20110317
  Transmission Date: 20110831
  Serious: Yes (Hospitalization)
  Sender: FDA-Public Use
  Company Number: JP-ELI_LILLY_AND_COMPANY-JP201101002256

PATIENT
  Sex: Male

DRUGS (18)
  1. PHENOBAL [Concomitant]
     Dosage: 600 MG, DAILY (1/D)
     Route: 048
  2. RIVOTRIL [Concomitant]
     Dosage: 1 MG, DAILY (1/D)
     Route: 048
  3. RISPERDAL [Concomitant]
     Dosage: 8 MG, DAILY (1/D)
     Route: 048
     Dates: end: 20110104
  4. ALEVIATIN [Concomitant]
     Dosage: 150 MG, DAILY (1/D)
     Route: 048
  5. PRIMIDONE [Concomitant]
     Dosage: 300 MG, DAILY (1/D)
     Route: 048
  6. SEROQUEL [Concomitant]
     Dosage: 300 MG, DAILY (1/D)
     Route: 048
     Dates: end: 20110104
  7. MAGNESIUM OXIDE [Concomitant]
     Dosage: 1.5 G, DAILY (1/D)
     Route: 048
  8. AMOBAN [Concomitant]
     Dosage: 10 MG, DAILY (1/D)
     Route: 048
  9. BONALON [Concomitant]
     Dosage: 35 MG, DAILY (1/D)
     Route: 048
  10. ALFAROL [Concomitant]
     Dosage: 0.5 UG, DAILY (1/D)
     Route: 048
  11. ROHYPNOL [Concomitant]
     Dosage: 2 MG, DAILY (1/D)
     Route: 048
  12. PURSENNID /00571902/ [Concomitant]
     Dosage: 36 MG, DAILY (1/D)
     Route: 048
  13. LAMISIL [Concomitant]
     Dosage: 125 MG, DAILY (1/D)
     Route: 048
  14. ZYPREXA [Suspect]
     Indication: EPILEPTIC PSYCHOSIS
     Dosage: 20 MG, DAILY (1/D)
     Route: 048
     Dates: end: 20110104
  15. LEVOTOMIN [Concomitant]
     Dosage: 25 MG, DAILY (1/D)
     Route: 048
  16. LEVOTOMIN [Concomitant]
     Dosage: 125 MG, DAILY (1/D)
     Route: 048
  17. DEPAKENE [Concomitant]
     Dosage: 600 MG, DAILY (1/D)
     Route: 048
  18. LONASEN [Concomitant]
     Dosage: 24 MG, DAILY (1/D)
     Route: 048

REACTIONS (5)
  - HYPERKALAEMIA [None]
  - HYPOGLYCAEMIA [None]
  - OFF LABEL USE [None]
  - BLOOD INSULIN INCREASED [None]
  - PNEUMONIA [None]
